FAERS Safety Report 23783125 (Version 1)
Quarter: 2024Q2

REPORT INFORMATION
  Report Type: Spontaneous
  Country: US (occurrence: None)
  Receive Date: 20240424
  Receipt Date: 20240424
  Transmission Date: 20240715
  Serious: No
  Sender: FDA-Public Use
  Company Number: None

PATIENT
  Age: 79 Year
  Sex: Male
  Weight: 86 kg

DRUGS (1)
  1. LECANEMAB-IRMB [Suspect]
     Active Substance: LECANEMAB-IRMB
     Route: 042
     Dates: start: 20240328

REACTIONS (4)
  - Arthralgia [None]
  - Infusion related reaction [None]
  - Tremor [None]
  - Feeling cold [None]

NARRATIVE: CASE EVENT DATE: 20240328
